FAERS Safety Report 10082707 (Version 1)
Quarter: 2014Q2

REPORT INFORMATION
  Report Type: Spontaneous
  Country: PH (occurrence: PH)
  Receive Date: 20140416
  Receipt Date: 20140416
  Transmission Date: 20141212
  Serious: Yes (Other)
  Sender: FDA-Public Use
  Company Number: PH-009507513-1404PHL009368

PATIENT
  Sex: 0

DRUGS (1)
  1. LORATADINE [Suspect]
     Route: 048

REACTIONS (1)
  - Torsade de pointes [Unknown]
